FAERS Safety Report 18590510 (Version 4)
Quarter: 2021Q1

REPORT INFORMATION
  Report Type: Other
  Country: US (occurrence: US)
  Receive Date: 20201208
  Receipt Date: 20210111
  Transmission Date: 20210419
  Serious: Yes (Death)
  Sender: FDA-Public Use
  Company Number: US-ROCHE-2728590

PATIENT
  Sex: Male

DRUGS (3)
  1. AVASTIN [Suspect]
     Active Substance: BEVACIZUMAB
     Dosage: IV EVERY 4 WEEKS
     Route: 042
  2. AVASTIN [Suspect]
     Active Substance: BEVACIZUMAB
     Indication: BRAIN NEOPLASM MALIGNANT
     Dosage: INFUSE 600MG INTRAVENOUSLY EVERY 2 WEEK(S)
     Route: 042
     Dates: start: 20201007
  3. AVASTIN [Suspect]
     Active Substance: BEVACIZUMAB
     Dosage: VIAL
     Route: 042

REACTIONS (1)
  - Death [Fatal]
